FAERS Safety Report 15191296 (Version 1)
Quarter: 2018Q3

REPORT INFORMATION
  Report Type: Spontaneous
  Country: US (occurrence: US)
  Receive Date: 20180625
  Receipt Date: 20180625
  Transmission Date: 20181010
  Serious: No
  Sender: FDA-Public Use
  Company Number: None

PATIENT
  Age: 24 Year
  Sex: Female
  Weight: 26.76 kg

DRUGS (1)
  1. INFLIXIMAB [Suspect]
     Active Substance: INFLIXIMAB
     Indication: CROHN^S DISEASE
     Route: 042
     Dates: start: 20181203

REACTIONS (5)
  - Chest discomfort [None]
  - Back pain [None]
  - Hypersensitivity [None]
  - Flushing [None]
  - Heart rate increased [None]

NARRATIVE: CASE EVENT DATE: 20180312
